FAERS Safety Report 19110627 (Version 1)
Quarter: 2021Q2

REPORT INFORMATION
  Report Type: Spontaneous
  Country: CN (occurrence: CN)
  Receive Date: 20210408
  Receipt Date: 20210408
  Transmission Date: 20210717
  Serious: Yes (Life-Threatening, Hospitalization)
  Sender: FDA-Public Use
  Company Number: CN-BAXTER-2021BAX006623

PATIENT
  Age: 47 Year
  Sex: Female
  Weight: 64 kg

DRUGS (6)
  1. ENDOXAN [Suspect]
     Active Substance: CYCLOPHOSPHAMIDE
     Indication: BREAST CANCER
     Dosage: ENDOXAN 0.9 G + NS 250 ML
     Route: 041
     Dates: start: 20210114, end: 20210114
  2. PIRARUBICIN HYDROCHLORIDE [Suspect]
     Active Substance: PIRARUBICIN HYDROCHLORIDE
     Indication: BREAST CANCER
     Dosage: PIRARUBICIN HYDROCHLORIDE 70 MG + 5% GS 250 ML
     Route: 041
     Dates: start: 20210114, end: 20210114
  3. 0.9% SODIUM CHLORIDE INJECTION [Suspect]
     Active Substance: SODIUM CHLORIDE
     Dosage: AONUOXIAN 700 MG + NS 250 ML
     Route: 041
     Dates: start: 20210114, end: 20210114
  4. 0.9% SODIUM CHLORIDE INJECTION [Suspect]
     Active Substance: SODIUM CHLORIDE
     Indication: MEDICATION DILUTION
     Dosage: ENDOXAN 0.9 G + NS 250 ML
     Route: 041
     Dates: start: 20210114, end: 20210114
  5. 5% GLUCOSE  INJECTION [Suspect]
     Active Substance: DEXTROSE
     Indication: MEDICATION DILUTION
     Dosage: PIRARUBICIN HYDROCHLORIDE 70 MG + 5% GS 250 ML
     Route: 041
     Dates: start: 20210114, end: 20210114
  6. AONUOXIAN [Suspect]
     Active Substance: DEXRAZOXANE
     Indication: BREAST CANCER
     Dosage: AONUOXIAN 700 MG + NS 250 ML
     Route: 041
     Dates: start: 20210114, end: 20210114

REACTIONS (1)
  - Myelosuppression [Recovered/Resolved]

NARRATIVE: CASE EVENT DATE: 20210120
